FAERS Safety Report 10166680 (Version 1)
Quarter: 2014Q2

REPORT INFORMATION
  Report Type: Spontaneous
  Country: US (occurrence: None)
  Receive Date: 20140509
  Receipt Date: 20140509
  Transmission Date: 20141212
  Serious: Yes (Other)
  Sender: FDA-Public Use
  Company Number: None

PATIENT
  Age: 68 Year
  Sex: Female
  Weight: 78.47 kg

DRUGS (1)
  1. ENBREL [Suspect]
     Indication: RHEUMATOID ARTHRITIS
     Dosage: INJECTABLE Q WEEK
     Route: 058
     Dates: start: 20140207, end: 20140502

REACTIONS (4)
  - Headache [None]
  - Abdominal discomfort [None]
  - Chills [None]
  - Fatigue [None]
